FAERS Safety Report 24449243 (Version 1)
Quarter: 2024Q4

REPORT INFORMATION
  Report Type: Spontaneous
  Country: US (occurrence: US)
  Receive Date: 20241017
  Receipt Date: 20241017
  Transmission Date: 20250115
  Serious: Yes (Other)
  Sender: MERCK
  Company Number: US-009507513-2410USA005153

PATIENT
  Sex: Female

DRUGS (2)
  1. KEYTRUDA [Suspect]
     Active Substance: PEMBROLIZUMAB
     Dosage: UNK
  2. LENVATINIB MESYLATE [Suspect]
     Active Substance: LENVATINIB MESYLATE
     Indication: Uterine cancer
     Dosage: 14 MILLIGRAM, QD
     Route: 048

REACTIONS (15)
  - Colonic fistula [Unknown]
  - Anal fistula [Unknown]
  - Recurrent cancer [Unknown]
  - Hypertension [Recovered/Resolved]
  - Weight decreased [Unknown]
  - Diarrhoea [Unknown]
  - Anal fissure [Unknown]
  - Gastrointestinal disorder [Unknown]
  - Infusion site rash [Unknown]
  - Joint stiffness [Unknown]
  - Lichen sclerosus [Unknown]
  - Blood calcium abnormal [Recovered/Resolved]
  - Blood potassium abnormal [Recovered/Resolved]
  - Blood magnesium abnormal [Not Recovered/Not Resolved]
  - Product use issue [Unknown]
